FAERS Safety Report 17782798 (Version 2)
Quarter: 2020Q2

REPORT INFORMATION
  Report Type: Report from Study
  Country: GB (occurrence: GB)
  Receive Date: 20200513
  Receipt Date: 20200519
  Transmission Date: 20200714
  Serious: Yes (Life-Threatening, Hospitalization)
  Sender: FDA-Public Use
  Company Number: GB-PFIZER INC-2020188626

PATIENT
  Weight: 76.9 kg

DRUGS (23)
  1. MITOXANTRONE HCL [Suspect]
     Active Substance: MITOXANTRONE HYDROCHLORIDE
     Indication: ACUTE MYELOID LEUKAEMIA
     Dosage: 12 MG/M2, 1X/DAY AS INDUCTION THERAPY
     Route: 042
     Dates: start: 20200504, end: 20200507
  2. FENTANYL. [Concomitant]
     Active Substance: FENTANYL
     Indication: ANALGESIC THERAPY
     Dosage: 25 UG (OTHER: STAT)
     Dates: start: 20200428, end: 20200428
  3. GEMTUZUMAB OZOGAMICIN [Suspect]
     Active Substance: GEMTUZUMAB OZOGAMICIN
     Indication: ACUTE MYELOID LEUKAEMIA
     Dosage: 5 MG
     Route: 042
     Dates: start: 20200507, end: 20200507
  4. CEFOTAXIME [Concomitant]
     Active Substance: CEFOTAXIME SODIUM
     Indication: PYREXIA
     Dosage: 3 G, 4X/DAY
     Dates: start: 20200426, end: 20200426
  5. LEVEMIR [Concomitant]
     Active Substance: INSULIN DETEMIR
     Indication: TYPE 1 DIABETES MELLITUS
     Dosage: 60 UNITED STATES PHARMACOPEIA UNIT, 2X/DAY
     Dates: start: 2009, end: 20200508
  6. OMEPRAZOLE. [Concomitant]
     Active Substance: OMEPRAZOLE
     Indication: PROPHYLAXIS AGAINST GASTROINTESTINAL ULCER
     Dosage: 40 MG, 1X/DAY
     Dates: start: 20200509
  7. PIPERACILLIN AND TAZOBACTAM [Concomitant]
     Active Substance: PIPERACILLIN SODIUM\TAZOBACTAM SODIUM
     Indication: FEBRILE NEUTROPENIA
     Dosage: 4.5 G, 4X/DAY
     Dates: start: 20200426, end: 20200508
  8. ATRACURIUM [Concomitant]
     Active Substance: ATRACURIUM
     Indication: ANAESTHESIA
     Dosage: 35 MG (OTHER: ONCE STAT)
     Dates: start: 20200428, end: 20200428
  9. SEVREDOL [Concomitant]
     Active Substance: MORPHINE
     Indication: PAIN
     Dosage: 20 MG, AS NEEDED
     Dates: start: 20200428, end: 20200508
  10. NOVORAPID [Concomitant]
     Active Substance: INSULIN ASPART
     Indication: TYPE 1 DIABETES MELLITUS
     Dosage: 22 UNITED STATES PHARMACOPEIA UNIT, AS NEEDED
     Dates: start: 2009
  11. GLYCOPYRRONIUM/NEOSTIGMINE [Concomitant]
     Indication: ANAESTHESIA
     Dosage: 1 ML (OTHER: ONCE STAT)
     Dates: start: 20200428, end: 20200428
  12. ALLOPURINOL. [Concomitant]
     Active Substance: ALLOPURINOL
     Indication: TUMOUR LYSIS SYNDROME
     Dosage: 200 MG, 3X/DAY
     Dates: start: 20200501
  13. MEDROXYPROGESTERON [Concomitant]
     Active Substance: MEDROXYPROGESTERONE ACETATE
     Indication: MENORRHAGIA
     Dosage: 10 MG, 1X/DAY
     Dates: start: 20200428
  14. TRETINOIN. [Concomitant]
     Active Substance: TRETINOIN
     Indication: ACUTE PROMYELOCYTIC LEUKAEMIA
     Dosage: 20 MG
     Dates: start: 20200426, end: 20200427
  15. CYTARABINE. [Suspect]
     Active Substance: CYTARABINE
     Indication: ACUTE MYELOID LEUKAEMIA
     Dosage: 180 MG, 1X/DAY
     Route: 042
     Dates: start: 20200504, end: 20200508
  16. LINEZOLID. [Concomitant]
     Active Substance: LINEZOLID
     Indication: CELLULITIS
     Dosage: 600 MG, 2X/DAY
     Dates: start: 20200501, end: 20200506
  17. PARACETAMOL [Concomitant]
     Active Substance: ACETAMINOPHEN
     Indication: PAIN
     Dosage: 1 G, AS NEEDED
     Dates: start: 20200426
  18. CASPOFUNGIN [Concomitant]
     Active Substance: CASPOFUNGIN
     Indication: FUNGAL INFECTION
     Dosage: 50 MG, 1X/DAY
     Dates: start: 20200428, end: 20200509
  19. MAXITROL [Concomitant]
     Active Substance: DEXAMETHASONE\NEOMYCIN SULFATE\POLYMYXIN B SULFATE
     Indication: CONJUNCTIVAL HAEMORRHAGE
     Dosage: 1 DROP, 4X/DAY (OTHER: DROPS)
     Dates: start: 20200426, end: 20200504
  20. FUROSEMID [Concomitant]
     Active Substance: FUROSEMIDE
     Indication: FLUID OVERLOAD
     Dosage: 20 MG, AS NEEDED
     Dates: start: 20200428, end: 20200507
  21. ONDANSETRAN [Concomitant]
     Active Substance: ONDANSETRON HYDROCHLORIDE
     Indication: NAUSEA
     Dosage: 8 MG, 3X/DAY
     Dates: start: 20200428, end: 20200508
  22. POTASSIUM CHLORIDE. [Concomitant]
     Active Substance: POTASSIUM CHLORIDE
     Indication: HYPOKALAEMIA
     Dosage: 20 ML, 3X/DAY
     Dates: start: 20200430, end: 20200508
  23. TEICOPLANIN [Concomitant]
     Active Substance: TEICOPLANIN
     Indication: PYREXIA
     Dosage: 800 MG, 1X/DAY
     Dates: start: 20200428, end: 20200501

REACTIONS (4)
  - Pulmonary oedema [Not Recovered/Not Resolved]
  - Hypersensitivity [Not Recovered/Not Resolved]
  - Acute kidney injury [Not Recovered/Not Resolved]
  - Hypotension [Not Recovered/Not Resolved]

NARRATIVE: CASE EVENT DATE: 20200507
